FAERS Safety Report 9616660 (Version 1)
Quarter: 2013Q4

REPORT INFORMATION
  Report Type: Spontaneous
  Country: FR (occurrence: FR)
  Receive Date: 20131011
  Receipt Date: 20131011
  Transmission Date: 20140711
  Serious: Yes (Hospitalization)
  Sender: FDA-Public Use
  Company Number: PHHY2013FR113961

PATIENT
  Age: 19 Year
  Sex: Female

DRUGS (5)
  1. VOLTARENE [Suspect]
     Indication: BACK PAIN
     Dosage: UNK UKN, UNK
     Route: 048
     Dates: start: 20130820, end: 20130821
  2. BIPROFENID [Suspect]
     Dosage: UNK UKN, UNK
     Route: 048
     Dates: start: 20130822
  3. LEELOO [Concomitant]
     Indication: CONTRACEPTION
     Dosage: UNK UKN, UNK
  4. MIOREL [Concomitant]
     Indication: BACK PAIN
     Dosage: UNK UKN, UNK
     Dates: start: 20130820
  5. VOGALENE LYOC [Concomitant]
     Dosage: UNK UKN, UNK
     Dates: start: 20130822

REACTIONS (7)
  - Pyelonephritis acute [Recovered/Resolved]
  - Pyrexia [Unknown]
  - Chills [Unknown]
  - Vomiting [Unknown]
  - Hyperhidrosis [Unknown]
  - Abdominal pain [Unknown]
  - Condition aggravated [Recovered/Resolved]
